FAERS Safety Report 19841303 (Version 4)
Quarter: 2022Q4

REPORT INFORMATION
  Report Type: Spontaneous
  Country: US (occurrence: US)
  Receive Date: 20210916
  Receipt Date: 20221118
  Transmission Date: 20230113
  Serious: No
  Sender: FDA-Public Use
  Company Number: US-BEH-2021135947

PATIENT
  Sex: Female
  Weight: 76.19 kg

DRUGS (4)
  1. HIZENTRA [Suspect]
     Active Substance: HUMAN IMMUNOGLOBULIN G
     Indication: Humoral immune defect
     Dosage: 18GM/90ML, WEEKLY
     Route: 058
     Dates: start: 202102
  2. HIZENTRA [Suspect]
     Active Substance: HUMAN IMMUNOGLOBULIN G
     Dosage: 18 GRAM, QW
     Route: 058
     Dates: start: 202009
  3. HIZENTRA [Suspect]
     Active Substance: HUMAN IMMUNOGLOBULIN G
     Dosage: 18 GRAM, QW
     Route: 058
     Dates: start: 202009
  4. HIZENTRA [Suspect]
     Active Substance: HUMAN IMMUNOGLOBULIN G
     Dosage: 12 GRAM, QW
     Route: 058
     Dates: start: 202207

REACTIONS (3)
  - Weight decreased [Unknown]
  - Weight decreased [Unknown]
  - Weight decreased [Unknown]
